FAERS Safety Report 5868524-8 (Version None)
Quarter: 2008Q3

REPORT INFORMATION
  Report Type: 
  Country: None (occurrence: None)
  Receive Date: 20080903
  Receipt Date: 20080822
  Transmission Date: 20090109
  Serious: Yes (Other)
  Sender: FDA-Public Use
  Company Number: US-NOVOPROD-278839

PATIENT
  Sex: Female
  Weight: 61.224 kg

DRUGS (2)
  1. VAGIFEM [Suspect]
     Indication: ATROPHIC VULVOVAGINITIS
     Dosage: UNKNOWN
     Route: 067
     Dates: start: 20060101
  2. LEVOXYL [Concomitant]
     Indication: HYPOTHYROIDISM
     Dosage: 15 UG, QD
     Route: 048

REACTIONS (1)
  - ANGIOEDEMA [None]
